FAERS Safety Report 7393267-1 (Version None)
Quarter: 2011Q2

REPORT INFORMATION
  Report Type: 
  Country: None (occurrence: None)
  Receive Date: 20110405
  Receipt Date: 20110325
  Transmission Date: 20111010
  Serious: Yes (Hospitalization)
  Sender: FDA-Public Use
  Company Number: US-BIOGENIDEC-2010BI036062

PATIENT
  Age: 57 Year
  Sex: Female
  Weight: 102 kg

DRUGS (11)
  1. JANUMET [Concomitant]
  2. CLARITIN [Concomitant]
     Indication: MULTIPLE ALLERGIES
  3. AMANTADINE HCL [Concomitant]
  4. ASPIRIN [Concomitant]
  5. CRESTOR [Concomitant]
  6. NEXIUM [Concomitant]
  7. VITAMIN D [Concomitant]
  8. AVONEX [Suspect]
     Indication: MULTIPLE SCLEROSIS
     Route: 030
     Dates: start: 20030101
  9. LEVOTHYROXINE SODIUM [Concomitant]
  10. IBUPROFEN [Concomitant]
  11. IBUPROFEN AND DIPHENHYDRAMINE [Concomitant]

REACTIONS (1)
  - ENDOMETRIAL CANCER [None]
